FAERS Safety Report 7364320-3 (Version None)
Quarter: 2011Q1

REPORT INFORMATION
  Report Type: 
  Country: None (occurrence: None)
  Receive Date: 20110321
  Receipt Date: 20110315
  Transmission Date: 20110831
  Serious: Yes (Death, Other)
  Sender: FDA-Public Use
  Company Number: JP-BAYER-2011-023955

PATIENT
  Age: 64 Year
  Sex: Female

DRUGS (3)
  1. DACARBAZINE [Suspect]
     Indication: MALIGNANT MELANOMA
     Dosage: 5000 MG, UNK
  2. NIMUSTINE HYDROCHLORIDE [Suspect]
     Indication: MALIGNANT MELANOMA
     Dosage: 500 MG, UNK
  3. VINCRISTINE SULFATE [Suspect]
     Indication: MALIGNANT MELANOMA
     Dosage: 5 MG, UNK

REACTIONS (2)
  - FATIGUE [None]
  - MYELODYSPLASTIC SYNDROME [None]
